FAERS Safety Report 8869326 (Version 1)
Quarter: 2012Q4

REPORT INFORMATION
  Report Type: Spontaneous
  Country: IN (occurrence: None)
  Receive Date: 20121022
  Receipt Date: 20121022
  Transmission Date: 20130627
  Serious: Yes (Life-Threatening, Hospitalization)
  Sender: FDA-Public Use
  Company Number: 2012SUN00149

PATIENT
  Age: 24 Year
  Sex: Female

DRUGS (1)
  1. AMLODIPINE [Suspect]
     Indication: DRUG USE FOR UNKNOWN INDICATION
     Dosage: 5 mg, 56 Tablets, Oral
     Route: 048

REACTIONS (8)
  - Intentional overdose [None]
  - Toxicity to various agents [None]
  - Crepitations [None]
  - Blood glucose increased [None]
  - Metabolic acidosis [None]
  - Tachycardia [None]
  - Hypotension [None]
  - Lung disorder [None]
